FAERS Safety Report 13296867 (Version 1)
Quarter: 2017Q1

REPORT INFORMATION
  Report Type: Report from Study
  Country: CN (occurrence: CN)
  Receive Date: 20170306
  Receipt Date: 20170306
  Transmission Date: 20170428
  Serious: Yes (Death, Hospitalization)
  Sender: FDA-Public Use
  Company Number: CN-ROCHE-1881170

PATIENT
  Sex: Male
  Weight: 90 kg

DRUGS (1)
  1. AVASTIN [Suspect]
     Active Substance: BEVACIZUMAB
     Indication: NON-SMALL CELL LUNG CANCER
     Route: 041
     Dates: start: 20160402

REACTIONS (7)
  - Disease progression [Fatal]
  - Protein total decreased [Unknown]
  - Abasia [Unknown]
  - Drug ineffective [Unknown]
  - Fatigue [Unknown]
  - Haemorrhoids [Unknown]
  - Gait disturbance [Unknown]
